FAERS Safety Report 22034699 (Version 4)
Quarter: 2023Q2

REPORT INFORMATION
  Report Type: Spontaneous
  Country: US (occurrence: US)
  Receive Date: 20230224
  Receipt Date: 20230504
  Transmission Date: 20230722
  Serious: Yes (Hospitalization)
  Sender: FDA-Public Use
  Company Number: US-PFIZER INC-202300079683

PATIENT
  Age: 84 Year
  Sex: Female
  Weight: 63.492 kg

DRUGS (2)
  1. PAXLOVID [Suspect]
     Active Substance: NIRMATRELVIR\RITONAVIR
     Indication: COVID-19
     Dosage: 300MG/100MG, TWICE A DAY FOR 5 DAYS (ALSO REPORTED AS DIRECTED DAY1-2 PERDAY, 3-5 1 PERDAY)
     Dates: start: 20230220, end: 20230224
  2. TYLENOL [Concomitant]
     Active Substance: ACETAMINOPHEN
     Dosage: MINIMUM (TAKEN 2-4 A DAY)
     Dates: end: 20230313

REACTIONS (3)
  - COVID-19 [Not Recovered/Not Resolved]
  - Disease recurrence [Not Recovered/Not Resolved]
  - Diarrhoea [Recovered/Resolved]

NARRATIVE: CASE EVENT DATE: 20230222
